FAERS Safety Report 5238631-1 (Version None)
Quarter: 2007Q1

REPORT INFORMATION
  Report Type: 
  Country: None (occurrence: None)
  Receive Date: 20070215
  Receipt Date: 20070205
  Transmission Date: 20070707
  Serious: Yes (Other)
  Sender: FDA-Public Use
  Company Number: GB-ELI_LILLY_AND_COMPANY-GB200612001261

PATIENT
  Age: 65 Year
  Sex: Male

DRUGS (2)
  1. CYMBALTA [Suspect]
     Indication: DEPRESSION
     Dosage: 90 MG, UNK
     Route: 048
     Dates: end: 20061101
  2. CYMBALTA [Suspect]
     Dosage: 60 MG, UNK
     Route: 048

REACTIONS (1)
  - CEREBROVASCULAR ACCIDENT [None]
